FAERS Safety Report 11125341 (Version 4)
Quarter: 2015Q3

REPORT INFORMATION
  Report Type: Spontaneous
  Country: US (occurrence: US)
  Receive Date: 20150520
  Receipt Date: 20150925
  Transmission Date: 20151125
  Serious: Yes (Death, Hospitalization, Other)
  Sender: FDA-Public Use
  Company Number: US-MERCK-1505USA006593

PATIENT
  Age: 67 Year
  Sex: Female

DRUGS (1)
  1. NOXAFIL [Suspect]
     Active Substance: POSACONAZOLE
     Indication: LEUKAEMIA
     Dosage: 3 PILLS A DAY
     Route: 048
     Dates: start: 201501

REACTIONS (6)
  - Pneumonia [Not Recovered/Not Resolved]
  - Tonsillitis [Unknown]
  - Anaemia [Unknown]
  - Hypokalaemia [Unknown]
  - Relapsing fever [Unknown]
  - Leukaemia [Fatal]

NARRATIVE: CASE EVENT DATE: 2015
